FAERS Safety Report 18717548 (Version 1)
Quarter: 2021Q1

REPORT INFORMATION
  Report Type: Spontaneous
  Country: US (occurrence: US)
  Receive Date: 20210108
  Receipt Date: 20210108
  Transmission Date: 20210419
  Serious: Yes (Other)
  Sender: FDA-Public Use
  Company Number: US-MYLANLABS-2021M1000888

PATIENT
  Age: 64 Year
  Sex: Male

DRUGS (4)
  1. ABRAXANE [Suspect]
     Active Substance: PACLITAXEL
     Indication: NEPHROPATHY
     Route: 065
  2. GEMCITABINE. [Suspect]
     Active Substance: GEMCITABINE
     Indication: NEPHROPATHY
     Route: 065
  3. GEMCITABINE. [Suspect]
     Active Substance: GEMCITABINE
     Indication: PARANEOPLASTIC SYNDROME
  4. ABRAXANE [Suspect]
     Active Substance: PACLITAXEL
     Indication: PARANEOPLASTIC SYNDROME

REACTIONS (1)
  - Drug ineffective [Unknown]
